FAERS Safety Report 20878412 (Version 2)
Quarter: 2022Q2

REPORT INFORMATION
  Report Type: Spontaneous
  Country: US (occurrence: US)
  Receive Date: 20220526
  Receipt Date: 20220616
  Transmission Date: 20220721
  Serious: No
  Sender: FDA-Public Use
  Company Number: US-PFIZER INC-202200483550

PATIENT
  Age: 61 Year
  Sex: Female
  Weight: 49.9 kg

DRUGS (14)
  1. COLESTIPOL HYDROCHLORIDE [Suspect]
     Active Substance: COLESTIPOL HYDROCHLORIDE
     Indication: Bile acid malabsorption
     Dosage: 1 GRAM, MAYBE 4 TIMES A WEEK
     Dates: start: 2020, end: 202111
  2. COLESTIPOL HYDROCHLORIDE [Suspect]
     Active Substance: COLESTIPOL HYDROCHLORIDE
     Dosage: 1 G
  3. COLESTIPOL HYDROCHLORIDE [Suspect]
     Active Substance: COLESTIPOL HYDROCHLORIDE
     Dosage: 2 GRAMS IN THE MORNING AND AT NIGHT
  4. FOLIC ACID [Suspect]
     Active Substance: FOLIC ACID
     Dosage: UNK, 1X/DAY
     Dates: start: 20220428
  5. CLONAZEPAM [Concomitant]
     Active Substance: CLONAZEPAM
     Indication: Panic attack
     Dosage: UNK (1 MG IN THE MORNING AND 0.75 MG AT NIGHT)
  6. CLONAZEPAM [Concomitant]
     Active Substance: CLONAZEPAM
     Indication: Panic disorder
  7. GABAPENTIN [Concomitant]
     Active Substance: GABAPENTIN
     Indication: Neuralgia
     Dosage: 200 MG (300 MG CAPSULES TAKEN 2 CAPS A DAY)
  8. DONNATAL [Concomitant]
     Active Substance: ATROPINE SULFATE\HYOSCYAMINE SULFATE\PHENOBARBITAL\SCOPOLAMINE HYDROBROMIDE
     Indication: Irritable bowel syndrome
     Dosage: 32.4 MG, 2X/DAY (16.2 MG TABLET TAKEN 2 TABS 2X A DAY)
  9. IMODIUM [Concomitant]
     Active Substance: LOPERAMIDE HYDROCHLORIDE
     Dosage: UNK, AS NEEDED
  10. ALOSETRON HYDROCHLORIDE [Concomitant]
     Active Substance: ALOSETRON HYDROCHLORIDE
     Indication: Irritable bowel syndrome
     Dosage: 0.5 MG, ALTERNATE DAY(0.5 MG EVERY OTHER DAY ONCE A DAY)
  11. ALOSETRON HYDROCHLORIDE [Concomitant]
     Active Substance: ALOSETRON HYDROCHLORIDE
     Indication: Diarrhoea
  12. ESSENTIAL AMINO ACID MIX [Concomitant]
     Indication: Nutritional supplementation
     Dosage: UNK
     Dates: start: 202008
  13. PRILOSEC [Concomitant]
     Active Substance: OMEPRAZOLE MAGNESIUM
     Dosage: 20 MG, DAILY
     Dates: start: 20220428
  14. CARAFATE [Concomitant]
     Active Substance: SUCRALFATE
     Dosage: UNK, 4X/DAY
     Dates: start: 20220428

REACTIONS (21)
  - Disease recurrence [Unknown]
  - Anxiety disorder [Unknown]
  - Dry eye [Unknown]
  - Agitation [Unknown]
  - Palpitations [Unknown]
  - Nausea [Unknown]
  - Vertigo [Unknown]
  - Feeling abnormal [Unknown]
  - Aversion [Unknown]
  - Gastrointestinal pain [Unknown]
  - Tooth disorder [Unknown]
  - Nervousness [Unknown]
  - White blood cell count increased [Unknown]
  - Intentional product misuse [Unknown]
  - Panic attack [Unknown]
  - Eye disorder [Unknown]
  - Panic reaction [Unknown]
  - Drug ineffective for unapproved indication [Unknown]
  - Off label use [Unknown]
  - Off label use [Unknown]
  - Drug effective for unapproved indication [Unknown]

NARRATIVE: CASE EVENT DATE: 20220322
